FAERS Safety Report 7688880-8 (Version None)
Quarter: 2011Q3

REPORT INFORMATION
  Report Type: 
  Country: None (occurrence: None)
  Receive Date: 20110817
  Receipt Date: 20110805
  Transmission Date: 20111222
  Serious: Yes (Hospitalization)
  Sender: FDA-Public Use
  Company Number: PHHY2011US72013

PATIENT
  Age: 18 Year
  Sex: Female

DRUGS (5)
  1. METHERGINE [Suspect]
     Dosage: 0.2 MG, INTO THE MYOMETRIUM
  2. PROSTIN F2 ALPHA [Suspect]
     Dosage: 15 MG, INTO MYOMETRIUM
  3. METHERGINE [Suspect]
     Dosage: 0.2 MG, BOLUS
     Route: 040
  4. PITOCIN [Suspect]
     Dosage: 20 UNITS
     Route: 042
  5. PITOCIN [Suspect]
     Dosage: 40 UNITS MORE
     Route: 042

REACTIONS (8)
  - WHEEZING [None]
  - PALLOR [None]
  - HYPERTENSION [None]
  - NAUSEA [None]
  - VOMITING [None]
  - DYSPNOEA [None]
  - POSTPARTUM HAEMORRHAGE [None]
  - HYPERHIDROSIS [None]
